FAERS Safety Report 13256904 (Version 3)
Quarter: 2017Q1

REPORT INFORMATION
  Report Type: Spontaneous
  Country: US (occurrence: US)
  Receive Date: 20170221
  Receipt Date: 20170326
  Transmission Date: 20170428
  Serious: Yes (Hospitalization, Other)
  Sender: FDA-Public Use
  Company Number: US-ASTRAZENECA-2017SE17933

PATIENT
  Age: 715 Month
  Sex: Female
  Weight: 50.8 kg

DRUGS (23)
  1. MOVANTIK [Suspect]
     Active Substance: NALOXEGOL OXALATE
     Indication: ABDOMINAL DISTENSION
     Route: 048
     Dates: start: 20161111, end: 20161111
  2. LUBIPROSTONE [Concomitant]
     Active Substance: LUBIPROSTONE
     Route: 048
  3. ERYTHROMYCIN. [Concomitant]
     Active Substance: ERYTHROMYCIN
     Indication: SINUSITIS
     Route: 048
     Dates: start: 20161102
  4. AMITIZA [Concomitant]
     Active Substance: LUBIPROSTONE
     Indication: CONSTIPATION
     Dates: start: 2015
  5. LACTULOSE. [Concomitant]
     Active Substance: LACTULOSE
     Dosage: 30 ML SOLUTION DAILY OR AS NEEDED
     Dates: start: 201612
  6. MORPHINE [Concomitant]
     Active Substance: MORPHINE
     Indication: PAIN
     Dosage: 30.0MG UNKNOWN
     Dates: start: 201501
  7. MOVANTIK [Suspect]
     Active Substance: NALOXEGOL OXALATE
     Indication: CONSTIPATION
     Route: 048
     Dates: start: 20161111, end: 20161111
  8. CHERATUSSIN AC [Concomitant]
     Active Substance: CODEINE PHOSPHATE\GUAIFENESIN
     Indication: COUGH
     Dosage: ONE TEASPOON EVERY 6 HOURS OR AS NEEDED FOR COUGH
     Dates: start: 20161102
  9. MORPHINE [Concomitant]
     Active Substance: MORPHINE
     Indication: PAIN
     Dosage: 30.0MG UNKNOWN
     Dates: start: 201601
  10. VOLTARIN [Concomitant]
     Indication: MUSCULOSKELETAL PAIN
     Dosage: 1 PERCENT TOPICAL GE
     Dates: start: 201608
  11. CLONAZEPAM. [Concomitant]
     Active Substance: CLONAZEPAM
     Indication: ANXIETY
     Route: 048
  12. OMEPRAZOLE. [Suspect]
     Active Substance: OMEPRAZOLE
     Indication: GASTROOESOPHAGEAL REFLUX DISEASE
     Route: 048
  13. MYLANTA [Concomitant]
     Active Substance: ALUMINUM HYDROXIDE\DIMETHICONE\MAGNESIUM HYDROXIDE
     Indication: CONSTIPATION
     Dosage: EVERY NIGHT
     Route: 048
  14. ERYTHROMYCIN. [Concomitant]
     Active Substance: ERYTHROMYCIN
     Indication: PROPHYLAXIS
     Route: 048
     Dates: start: 20161102
  15. HYDROXYZINE [Concomitant]
     Active Substance: HYDROXYZINE HYDROCHLORIDE
     Indication: ECZEMA
     Route: 048
  16. MILK OF MAGNESIA [Concomitant]
     Active Substance: MAGNESIUM HYDROXIDE
  17. AMITIZA [Concomitant]
     Active Substance: LUBIPROSTONE
     Indication: CONSTIPATION
     Dates: start: 201701
  18. LACTULOSE. [Concomitant]
     Active Substance: LACTULOSE
     Dates: start: 2014, end: 20150913
  19. OMEPRAZOLE. [Suspect]
     Active Substance: OMEPRAZOLE
     Indication: GASTROOESOPHAGEAL REFLUX DISEASE
     Route: 048
  20. MORPHINE [Concomitant]
     Active Substance: MORPHINE
     Indication: PAIN
     Dosage: 15.0MG UNKNOWN
     Dates: start: 201601
  21. MIRALAX [Concomitant]
     Active Substance: POLYETHYLENE GLYCOL 3350
     Indication: CONSTIPATION
     Dosage: 14 OZ. DAILY OR ONE CAPFUL A DAY
     Route: 048
  22. VOLTARIN [Concomitant]
     Indication: MUSCULOSKELETAL PAIN
     Dosage: 1 PERCENT TOPICAL, 4 TIMES AND DAY
     Dates: start: 201603
  23. SUCRALFATE. [Concomitant]
     Active Substance: SUCRALFATE

REACTIONS (18)
  - Ileus [Unknown]
  - Ulcerative gastritis [Unknown]
  - Adverse event [Unknown]
  - Gastroenteritis [Unknown]
  - Scoliosis [Unknown]
  - Nausea [Unknown]
  - Haematemesis [Unknown]
  - Diarrhoea [Unknown]
  - Retching [Unknown]
  - Diverticulitis [Unknown]
  - Leukopenia [Unknown]
  - Abdominal pain [Unknown]
  - Off label use [Unknown]
  - Vomiting [Unknown]
  - Weight decreased [Unknown]
  - Malnutrition [Unknown]
  - Abdominal discomfort [Unknown]
  - Product use issue [Unknown]

NARRATIVE: CASE EVENT DATE: 201611
